FAERS Safety Report 14956817 (Version 1)
Quarter: 2018Q2

REPORT INFORMATION
  Report Type: Spontaneous
  Country: US (occurrence: US)
  Receive Date: 20180531
  Receipt Date: 20180531
  Transmission Date: 20180711
  Serious: No
  Sender: FDA-Public Use
  Company Number: US-NOVEN PHARMACEUTICALS, INC.-US2017001294

PATIENT

DRUGS (7)
  1. DAYTRANA [Suspect]
     Active Substance: METHYLPHENIDATE
     Indication: BIPOLAR DISORDER
  2. DAYTRANA [Suspect]
     Active Substance: METHYLPHENIDATE
     Indication: ATTENTION DEFICIT/HYPERACTIVITY DISORDER
     Dosage: 30 MG, UNKNOWN
     Route: 062
     Dates: end: 2017
  3. RITALIN [Concomitant]
     Active Substance: METHYLPHENIDATE HYDROCHLORIDE
  4. DAYTRANA [Suspect]
     Active Substance: METHYLPHENIDATE
     Indication: AUTISM SPECTRUM DISORDER
  5. ZYRTEC [Concomitant]
     Active Substance: CETIRIZINE HYDROCHLORIDE
     Dosage: UNK, BEDTIME
  6. CLARITIN [Concomitant]
     Active Substance: LORATADINE
  7. ROCEPHINE [Concomitant]
     Active Substance: CEFTRIAXONE SODIUM

REACTIONS (4)
  - Drug dose omission [Not Recovered/Not Resolved]
  - Off label use [Unknown]
  - No adverse event [Unknown]
  - Product packaging quantity issue [Recovered/Resolved]

NARRATIVE: CASE EVENT DATE: 2017
